FAERS Safety Report 4316096-1 (Version None)
Quarter: 2004Q1

REPORT INFORMATION
  Report Type: 
  Country: None (occurrence: None)
  Receive Date: 20040305
  Receipt Date: 20040216
  Transmission Date: 20041129
  Serious: No
  Sender: FDA-Public Use
  Company Number: B0323313A

PATIENT
  Age: 67 Year
  Sex: Male

DRUGS (7)
  1. LITHIUM CARBONATE [Suspect]
     Dosage: 400 MG / TWICE PER DAY / UNKNOWN
  2. VENLAFAXINE HCL [Concomitant]
  3. METFORMIN HYDROCHLORIDE [Concomitant]
  4. GLICLAZIDE [Concomitant]
  5. PRAVASTATIN [Concomitant]
  6. ASPIRIN [Concomitant]
  7. ASASANTIN [Concomitant]

REACTIONS (18)
  - ABULIA [None]
  - ANOREXIA [None]
  - ASTHENIA [None]
  - BLOOD CREATININE INCREASED [None]
  - BLOOD UREA INCREASED [None]
  - CONFUSIONAL STATE [None]
  - CSF GLUCOSE INCREASED [None]
  - CSF PROTEIN INCREASED [None]
  - DEPRESSED LEVEL OF CONSCIOUSNESS [None]
  - DRUG LEVEL INCREASED [None]
  - DRUG TOXICITY [None]
  - ENCEPHALOPATHY [None]
  - HAEMODIALYSIS [None]
  - HYPOGLYCAEMIA [None]
  - MYOCLONUS [None]
  - SOMNOLENCE [None]
  - TRANSIENT ISCHAEMIC ATTACK [None]
  - TREMOR [None]
